FAERS Safety Report 7447948-1 (Version None)
Quarter: 2011Q2

REPORT INFORMATION
  Report Type: 
  Country: None (occurrence: None)
  Receive Date: 20110429
  Receipt Date: 20110418
  Transmission Date: 20111010
  Serious: Yes (Other)
  Sender: FDA-Public Use
  Company Number: US-WATSON-2011-05426

PATIENT
  Sex: Female

DRUGS (2)
  1. FOSAMAX [Suspect]
     Indication: OSTEOPOROSIS
     Dosage: ^SOMETIME AFTER FEBRURARY 2008^
     Route: 048
     Dates: start: 20080101
  2. ALENDRONATE SODIUM [Suspect]
     Indication: OSTEOPOROSIS
     Dosage: ^SOMETIME AFTER FEBRURARY 2008^
     Route: 048
     Dates: start: 20080101

REACTIONS (4)
  - FEMUR FRACTURE [None]
  - BONE DISORDER [None]
  - STRESS FRACTURE [None]
  - LOW TURNOVER OSTEOPATHY [None]
